FAERS Safety Report 5131458-0 (Version None)
Quarter: 2006Q4

REPORT INFORMATION
  Report Type: 
  Country: None (occurrence: None)
  Receive Date: 20061016
  Receipt Date: 20061002
  Transmission Date: 20070319
  Serious: Yes (Hospitalization)
  Sender: FDA-Public Use
  Company Number: ABILS-06-0281

PATIENT
  Age: 66 Year
  Sex: Male
  Weight: 101.515 kg

DRUGS (14)
  1. ABRAXANE [Suspect]
     Indication: BREAST CANCER METASTATIC
     Dosage: LAST DOSE PRIOR TO FIRST EVENT 28-APR-2006 (175 MG/M2, EVERY 3 WEEKS), INTRAVENOUS DRIP
     Route: 041
     Dates: start: 20060407
  2. PROCRIT [Suspect]
     Indication: ANAEMIA OF MALIGNANT DISEASE
     Dosage: (8000 IU, WEEKLY), SUBCUTANEOUS; SEE IMAGE
     Route: 058
     Dates: start: 20060417, end: 20060706
  3. PROCRIT [Suspect]
     Indication: ANAEMIA OF MALIGNANT DISEASE
     Dosage: (8000 IU, WEEKLY), SUBCUTANEOUS; SEE IMAGE
     Route: 058
     Dates: start: 20060707
  4. CYTOXAN [Suspect]
     Indication: BREAST CANCER METASTATIC
     Dosage: LAST DOSE PRIOR TO FIRST EVENT 25-APR-2006 MG/M2, EVERY 3 WEEKS), INTRAVENOUS DRIP
     Route: 041
     Dates: start: 20060405
  5. DOXORUBICIN HCL [Suspect]
     Indication: BREAST CANCER METASTATIC
     Dosage: LAST DOSE PRIOR TO FIRST EVENT 25-APR-2006 (50 MG/M2, EVERY 3 WEEKS), INTRAVENOUS DRIP
     Route: 041
     Dates: start: 20060405
  6. ASPIRIN [Suspect]
     Indication: HYPERCHOLESTEROLAEMIA
     Dosage: 325 MG (325 MG, OD), ORAL; PRIOR TO JAN-2006 - ONGOING
     Route: 048
  7. NEUPOGEN [Suspect]
     Indication: NEUTROPENIA
     Dates: start: 20060501, end: 20060501
  8. LIPITOR [Concomitant]
  9. LORTAB [Concomitant]
  10. FEMARA [Concomitant]
  11. ZESTRIL [Concomitant]
  12. NEXIUM [Concomitant]
  13. VERAPAMIL SR (VERAPAMIL HYDROCHLORIDE) [Concomitant]
  14. GEMFIBROZIL [Concomitant]

REACTIONS (14)
  - ANAEMIA [None]
  - CARDIAC FAILURE CONGESTIVE [None]
  - CHEST PAIN [None]
  - DEHYDRATION [None]
  - DYSPNOEA [None]
  - MUSCULOSKELETAL CHEST PAIN [None]
  - NEUTROPENIA [None]
  - PALPITATIONS [None]
  - PNEUMONIA [None]
  - PULMONARY CONGESTION [None]
  - RENAL FAILURE ACUTE [None]
  - SINUS TACHYCARDIA [None]
  - SUPRAVENTRICULAR TACHYCARDIA [None]
  - THROMBOCYTOPENIA [None]
